FAERS Safety Report 24134929 (Version 2)
Quarter: 2024Q3

REPORT INFORMATION
  Report Type: Spontaneous
  Country: FR (occurrence: FR)
  Receive Date: 20240725
  Receipt Date: 20240731
  Transmission Date: 20241017
  Serious: Yes (Death, Hospitalization, Other)
  Sender: SANDOZ
  Company Number: FR-002147023-PHHY2016FR186004

PATIENT
  Age: 85 Year
  Sex: Female
  Weight: 60 kg

DRUGS (18)
  1. ADCETRIS [Suspect]
     Active Substance: BRENTUXIMAB VEDOTIN
     Dosage: 110 MG, FIFTH COURSE
     Route: 042
     Dates: start: 20160310
  2. ADCETRIS [Suspect]
     Active Substance: BRENTUXIMAB VEDOTIN
     Indication: Hodgkin^s disease
     Dosage: 110 MG, FIRST CYCLE
     Route: 042
     Dates: start: 20151217, end: 20160330
  3. ADCETRIS [Suspect]
     Active Substance: BRENTUXIMAB VEDOTIN
     Dosage: 110 MG, FOURTH COURSE
     Route: 042
     Dates: start: 20160218
  4. ADCETRIS [Suspect]
     Active Substance: BRENTUXIMAB VEDOTIN
     Dosage: 110 MG, SECOND CYCLE
     Route: 042
     Dates: start: 20160107
  5. ADCETRIS [Suspect]
     Active Substance: BRENTUXIMAB VEDOTIN
     Dosage: 110 MG, THIRD CYCLE
     Route: 042
     Dates: start: 20160128
  6. ADCETRIS [Suspect]
     Active Substance: BRENTUXIMAB VEDOTIN
     Dosage: 70 MG, SIXTH COURSE
     Route: 042
     Dates: start: 20160330
  7. KARDEGIC [Suspect]
     Active Substance: ASPIRIN DL-LYSINE
     Indication: Product used for unknown indication
     Dosage: 160 MG, UNK
     Route: 065
  8. LEVOTHYROXINE [Suspect]
     Active Substance: LEVOTHYROXINE\LEVOTHYROXINE SODIUM
     Indication: Hypothyroidism
     Dosage: 25 ?G, UNK
     Route: 065
  9. PIPERACILLIN SODIUM\TAZOBACTAM SODIUM [Suspect]
     Active Substance: PIPERACILLIN SODIUM\TAZOBACTAM SODIUM
     Indication: Product used for unknown indication
     Dosage: UNK
     Route: 065
  10. ONDANSETRON [Suspect]
     Active Substance: ONDANSETRON
     Indication: Antibiotic therapy
     Dosage: 8 MG, UNK
     Route: 065
  11. GEMCITABINE [Concomitant]
     Active Substance: GEMCITABINE
     Indication: Hodgkin^s disease
     Dosage: UNK
     Route: 065
     Dates: start: 20160830, end: 20170216
  12. GEMCITABINE [Concomitant]
     Active Substance: GEMCITABINE
     Indication: Hodgkin^s disease
     Dosage: UNK
     Route: 065
     Dates: start: 20160830, end: 20170216
  13. OXALIPLATIN [Concomitant]
     Active Substance: OXALIPLATIN
     Dosage: UNK
     Route: 065
     Dates: start: 20160830, end: 20170216
  14. OXALIPLATIN [Concomitant]
     Active Substance: OXALIPLATIN
     Indication: Hodgkin^s disease
     Dosage: TWO CYCLES OF CHEMOTHERAPY WITH RGEMOX
     Route: 065
     Dates: start: 20160830, end: 20170216
  15. OXALIPLATIN [Concomitant]
     Active Substance: OXALIPLATIN
     Indication: Hodgkin^s disease
     Dosage: TWO CYCLES OF CHEMOTHERAPY WITH RGEMOX
     Route: 065
     Dates: start: 20160830, end: 20170216
  16. RITUXIMAB [Concomitant]
     Active Substance: RITUXIMAB
     Indication: Hodgkin^s disease
     Dosage: UNK
     Route: 065
     Dates: start: 20160830, end: 20170216
  17. RITUXIMAB [Concomitant]
     Active Substance: RITUXIMAB
     Dosage: UNK
     Route: 065
     Dates: start: 20160830, end: 20170216
  18. RITUXIMAB [Concomitant]
     Active Substance: RITUXIMAB
     Indication: Hodgkin^s disease
     Dosage: TWO CYCLES OF CHEMOTHERAPY WITH RGEMOX
     Route: 065
     Dates: start: 20160830, end: 20170216

REACTIONS (19)
  - Cardiac murmur [Fatal]
  - Vomiting [Fatal]
  - Weight decreased [Fatal]
  - Hyperhidrosis [Fatal]
  - Neuropathy peripheral [Fatal]
  - Rash [Fatal]
  - Cardio-respiratory arrest [Fatal]
  - Nausea [Fatal]
  - Neutropenia [Fatal]
  - Hyperthermia [Fatal]
  - Toxicity to various agents [Fatal]
  - Neoplasm progression [Fatal]
  - Pneumonia [Fatal]
  - Asthenia [Fatal]
  - Acute respiratory distress syndrome [Fatal]
  - Abdominal pain [Fatal]
  - Tachycardia [Fatal]
  - Hyperthermia [Fatal]
  - Hodgkin^s disease [Fatal]

NARRATIVE: CASE EVENT DATE: 20160101
